FAERS Safety Report 7677663-0 (Version None)
Quarter: 2011Q3

REPORT INFORMATION
  Report Type: 
  Country: None (occurrence: None)
  Receive Date: 20110811
  Receipt Date: 20110803
  Transmission Date: 20111222
  Serious: Yes (Other)
  Sender: FDA-Public Use
  Company Number: PHHY2011US67162

PATIENT
  Sex: Male
  Weight: 113.38 kg

DRUGS (10)
  1. SAW PALMETTO [Concomitant]
  2. MULTI-VITAMINS [Concomitant]
  3. VENLAFAXINE [Concomitant]
  4. FAMPRIDINE [Concomitant]
     Indication: MULTIPLE SCLEROSIS
     Dates: start: 20100816
  5. GILENYA [Suspect]
     Indication: MULTIPLE SCLEROSIS
     Dosage: 0.5 MG, QD
     Route: 048
     Dates: start: 20110511, end: 20110711
  6. COQ10 [Concomitant]
     Dosage: 100 MG, UNK
  7. ASPIRIN [Concomitant]
     Dosage: 81 MG, QD
     Route: 048
  8. LIPITOR [Concomitant]
     Dosage: 20 MG, UNK
  9. VITAMIN D [Concomitant]
  10. AMITRIPTYLINE HCL [Concomitant]
     Indication: DEPRESSION
     Dosage: 10 MG, UNK

REACTIONS (4)
  - HYPOAESTHESIA [None]
  - PALPITATIONS [None]
  - DYSPNOEA EXERTIONAL [None]
  - FATIGUE [None]
